FAERS Safety Report 25182298 (Version 1)
Quarter: 2025Q2

REPORT INFORMATION
  Report Type: Spontaneous
  Country: US (occurrence: US)
  Receive Date: 20250410
  Receipt Date: 20250410
  Transmission Date: 20250717
  Serious: No
  Sender: KINIKSA PHARMACEUTICALS
  Company Number: US-Kiniksa Pharmaceuticals Ltd.-2024KPU001065

PATIENT
  Age: 43 Year
  Sex: Male

DRUGS (1)
  1. ARCALYST [Suspect]
     Active Substance: RILONACEPT
     Indication: Product used for unknown indication
     Route: 058

REACTIONS (6)
  - Loss of personal independence in daily activities [Unknown]
  - Social problem [Unknown]
  - General symptom [Unknown]
  - Injection site reaction [Unknown]
  - Injection site rash [Unknown]
  - SARS-CoV-2 test positive [Unknown]
